FAERS Safety Report 4336707-4 (Version None)
Quarter: 2004Q2

REPORT INFORMATION
  Report Type: 
  Country: None (occurrence: None)
  Receive Date: 20040412
  Receipt Date: 20040323
  Transmission Date: 20050107
  Serious: Yes (Other)
  Sender: FDA-Public Use
  Company Number: US-BRISTOL-MYERS SQUIBB COMPANY-12541264

PATIENT
  Sex: Female

DRUGS (2)
  1. MAXIPIME [Suspect]
     Indication: PSEUDOMONAS INFECTION
  2. GENTAMICIN [Suspect]

REACTIONS (2)
  - NEPHROPATHY TOXIC [None]
  - NEUROTOXICITY [None]
